FAERS Safety Report 9115918 (Version 2)
Quarter: 2013Q1

REPORT INFORMATION
  Report Type: Spontaneous
  Country: JP (occurrence: JP)
  Receive Date: 20130225
  Receipt Date: 20130325
  Transmission Date: 20140127
  Serious: Yes (Hospitalization)
  Sender: FDA-Public Use
  Company Number: JP-GLAXOSMITHKLINE-B0869834A

PATIENT
  Age: 69 Year
  Sex: Female

DRUGS (6)
  1. LAMICTAL [Suspect]
     Indication: BIPOLAR I DISORDER
     Route: 048
     Dates: start: 20130108, end: 20130216
  2. SENNOSIDE [Suspect]
     Indication: BIPOLAR I DISORDER
     Dosage: 24MG PER DAY
     Route: 048
     Dates: end: 20130216
  3. ZYPREXA [Suspect]
     Indication: PRODUCT USED FOR UNKNOWN INDICATION
     Dosage: 10MG PER DAY
     Route: 048
     Dates: end: 20130216
  4. FLUNITRAZEPAM [Suspect]
     Indication: PRODUCT USED FOR UNKNOWN INDICATION
     Dosage: 2MG PER DAY
     Route: 048
     Dates: end: 20130216
  5. QUETIAPINE [Suspect]
     Indication: PRODUCT USED FOR UNKNOWN INDICATION
     Dosage: 25MG PER DAY
     Route: 048
     Dates: end: 20130216
  6. MIRTAZAPINE [Suspect]
     Indication: PRODUCT USED FOR UNKNOWN INDICATION
     Dosage: 15MG PER DAY
     Route: 048
     Dates: start: 20130215, end: 20130216

REACTIONS (2)
  - Drug eruption [Recovering/Resolving]
  - Rash generalised [Unknown]
